FAERS Safety Report 23377292 (Version 2)
Quarter: 2024Q2

REPORT INFORMATION
  Report Type: Spontaneous
  Country: US (occurrence: US)
  Receive Date: 20240108
  Receipt Date: 20240410
  Transmission Date: 20240715
  Serious: No
  Sender: FDA-Public Use
  Company Number: US-MELINTA THERAPEUTICS, LLC-US-MLNT-23-00600

PATIENT

DRUGS (3)
  1. REZZAYO [Suspect]
     Active Substance: REZAFUNGIN
     Indication: Bronchopulmonary aspergillosis
     Dosage: 400 MILLIGRAM, SINGLE
     Route: 042
  2. REZZAYO [Suspect]
     Active Substance: REZAFUNGIN
     Dosage: 200 MILLIGRAM WEEKLY FOR 12 WEEKS
     Route: 042
  3. FLECAINIDE [Concomitant]
     Active Substance: FLECAINIDE
     Indication: Cardiac disorder
     Dosage: UNK

REACTIONS (5)
  - COVID-19 [Recovering/Resolving]
  - Product prescribing issue [Unknown]
  - Product dose omission issue [Unknown]
  - Drug ineffective for unapproved indication [Unknown]
  - Product use issue [Unknown]
